FAERS Safety Report 17275463 (Version 1)
Quarter: 2020Q1

REPORT INFORMATION
  Report Type: Spontaneous
  Country: GB (occurrence: GB)
  Receive Date: 20200116
  Receipt Date: 20200116
  Transmission Date: 20200409
  Serious: Yes (Disabling)
  Sender: FDA-Public Use
  Company Number: GB-TEVA-2020-GB-1168526

PATIENT
  Age: 61 Year
  Sex: Female
  Weight: 94 kg

DRUGS (7)
  1. LYMECYCLINE [Concomitant]
     Active Substance: LYMECYCLINE
     Indication: ACNE
     Dates: start: 20191126
  2. AMITRIPTYLINE HYDROCHLORIDE. [Concomitant]
     Active Substance: AMITRIPTYLINE HYDROCHLORIDE
     Indication: PAIN
     Dosage: UP TO 6 AT NIGHT.
     Dates: start: 20181210, end: 20191217
  3. PARACETAMOL [Concomitant]
     Active Substance: ACETAMINOPHEN
     Dosage: TAKE 1 OR 2 FOUR TIMES DAILY.
     Dates: start: 20181210, end: 20191217
  4. PREGABALIN. [Concomitant]
     Active Substance: PREGABALIN
     Dosage: 2 DOSAGEFORM
     Dates: start: 20191217
  5. HYDROCORTISONE. [Concomitant]
     Active Substance: HYDROCORTISONE
     Dosage: APPLY SPARINGLY.
     Dates: start: 20191001, end: 20191002
  6. PRAMIPEXOLE. [Suspect]
     Active Substance: PRAMIPEXOLE
     Dosage: AT NIGHT.2 DOSAGEFORM
     Route: 065
     Dates: start: 20190708
  7. CLINDAMYCIN. [Concomitant]
     Active Substance: CLINDAMYCIN
     Dosage: USE.
     Dates: start: 20191008, end: 20191207

REACTIONS (2)
  - Obsessive-compulsive disorder [Unknown]
  - Gambling [Unknown]

NARRATIVE: CASE EVENT DATE: 20191217
